APPROVED DRUG PRODUCT: LEVETIRACETAM
Active Ingredient: LEVETIRACETAM
Strength: 500MG/5ML (100MG/ML)
Dosage Form/Route: INJECTABLE;INTRAVENOUS
Application: A206838 | Product #001
Applicant: JUBILANT GENERICS LTD
Approved: Jun 2, 2016 | RLD: No | RS: No | Type: DISCN